FAERS Safety Report 4635975-9 (Version None)
Quarter: 2005Q2

REPORT INFORMATION
  Report Type: 
  Country: None (occurrence: None)
  Receive Date: 20050415
  Receipt Date: 20050412
  Transmission Date: 20051028
  Serious: Yes (Death, Life-Threatening, Other)
  Sender: FDA-Public Use
  Company Number: ES-BRISTOL-MYERS SQUIBB COMPANY-12931853

PATIENT
  Age: 67 Year
  Sex: Male
  Weight: 70 kg

DRUGS (2)
  1. TAXOL [Suspect]
     Indication: NON-SMALL CELL LUNG CANCER
     Route: 042
     Dates: start: 20050331, end: 20050331
  2. PARAPLATIN [Suspect]
     Indication: NON-SMALL CELL LUNG CANCER
     Route: 042
     Dates: start: 20050331, end: 20050331

REACTIONS (5)
  - CARDIO-RESPIRATORY ARREST [None]
  - CEREBRAL ISCHAEMIA [None]
  - INTESTINAL OBSTRUCTION [None]
  - PLATELET COUNT DECREASED [None]
  - WHITE BLOOD CELL COUNT DECREASED [None]
